FAERS Safety Report 9468152 (Version 1)
Quarter: 2013Q3

REPORT INFORMATION
  Report Type: Spontaneous
  Country: CN (occurrence: CN)
  Receive Date: 20130821
  Receipt Date: 20130821
  Transmission Date: 20140515
  Serious: Yes (Death, Hospitalization, Other)
  Sender: FDA-Public Use
  Company Number: CN-PFIZER INC-2013240349

PATIENT
  Age: 85 Year
  Sex: Male
  Weight: 45 kg

DRUGS (1)
  1. LIPITOR [Suspect]
     Indication: HYPERLIPIDAEMIA
     Dosage: 40 MG, 1X/DAY
     Route: 048
     Dates: start: 20111016, end: 20111018

REACTIONS (2)
  - Brain herniation [Fatal]
  - Blood creatine phosphokinase increased [Unknown]
